FAERS Safety Report 7060532-7 (Version None)
Quarter: 2010Q4

REPORT INFORMATION
  Report Type: 
  Country: None (occurrence: None)
  Receive Date: 20101025
  Receipt Date: 20101012
  Transmission Date: 20110411
  Serious: Yes (Hospitalization)
  Sender: FDA-Public Use
  Company Number: US-ELI_LILLY_AND_COMPANY-US201008007188

PATIENT
  Sex: Female

DRUGS (4)
  1. FORTEO [Suspect]
     Indication: OSTEOPOROSIS
     Dosage: 20 UG, DAILY (1/D)
     Route: 065
  2. LEVOXIN [Concomitant]
     Dosage: UNK, UNKNOWN
     Route: 065
  3. PROTONIX [Concomitant]
     Dosage: UNK, UNKNOWN
     Route: 065
  4. RYTHMOL [Concomitant]
     Dosage: 75 MG, 2/D
     Route: 065

REACTIONS (1)
  - APPENDICITIS PERFORATED [None]
